FAERS Safety Report 7803991-1 (Version None)
Quarter: 2011Q4

REPORT INFORMATION
  Report Type: 
  Country: None (occurrence: None)
  Receive Date: 20111010
  Receipt Date: 20111007
  Transmission Date: 20120403
  Serious: Yes (Other)
  Sender: FDA-Public Use
  Company Number: US-JNJFOC-20111000779

PATIENT
  Sex: Female
  Weight: 72.58 kg

DRUGS (14)
  1. HYDROXYZINE HCL [Concomitant]
     Indication: SLEEP DISORDER
     Route: 048
     Dates: start: 20090101
  2. AMITIZA [Concomitant]
     Route: 048
  3. OXYCODONE HCL [Concomitant]
     Indication: BREAKTHROUGH PAIN
     Route: 048
     Dates: start: 20100101
  4. VITAMIN D [Concomitant]
     Route: 048
     Dates: start: 20110101
  5. FENTANYL [Suspect]
     Indication: NERVE INJURY
     Route: 062
     Dates: start: 20060101
  6. GABAPENTIN [Concomitant]
     Indication: NERVE INJURY
     Route: 048
     Dates: start: 20060101
  7. CYMBALTA [Concomitant]
     Indication: NERVE INJURY
     Route: 048
     Dates: start: 20060101
  8. ELMIRON [Concomitant]
     Indication: URINARY TRACT INFECTION
     Route: 048
     Dates: start: 20060101
  9. PROMETHAZINE [Concomitant]
     Indication: NAUSEA
     Route: 048
     Dates: start: 20060101
  10. FENTANYL [Suspect]
     Indication: NERVE INJURY
     Dosage: NDC#079817111355
     Route: 062
     Dates: start: 20060101, end: 20060101
  11. VITAMIN B-12 [Concomitant]
     Route: 030
     Dates: start: 20110101
  12. LOTREL [Concomitant]
     Indication: HYPERTENSION
     Route: 048
     Dates: start: 20080101
  13. ELAVIL [Concomitant]
     Indication: SLEEP DISORDER
     Route: 048
     Dates: start: 20090101
  14. FOLIC ACID [Concomitant]
     Route: 048
     Dates: start: 20110101

REACTIONS (7)
  - URINARY TRACT INFECTION [None]
  - FALL [None]
  - PRODUCT QUALITY ISSUE [None]
  - SEPSIS [None]
  - DEPRESSION [None]
  - APPLICATION SITE VESICLES [None]
  - JOINT INJURY [None]
